FAERS Safety Report 20203992 (Version 3)
Quarter: 2022Q1

REPORT INFORMATION
  Report Type: Spontaneous
  Country: GB (occurrence: GB)
  Receive Date: 20211219
  Receipt Date: 20220118
  Transmission Date: 20220423
  Serious: Yes (Other)
  Sender: FDA-Public Use
  Company Number: GB-BIOGEN-2021BI01078117

PATIENT

DRUGS (4)
  1. SPINRAZA [Suspect]
     Active Substance: NUSINERSEN
     Indication: Spinal muscular atrophy
     Route: 037
  2. SPINRAZA [Suspect]
     Active Substance: NUSINERSEN
     Route: 037
     Dates: start: 20170815, end: 20200721
  3. AZITHROMYCIN [Concomitant]
     Active Substance: AZITHROMYCIN
     Indication: Product used for unknown indication
     Route: 065
  4. MOVICOL [Concomitant]
     Active Substance: POLYETHYLENE GLYCOL 3350\POTASSIUM CHLORIDE\SODIUM BICARBONATE\SODIUM CHLORIDE
     Indication: Product used for unknown indication
     Route: 065

REACTIONS (11)
  - Medical device site fibrosis [Unknown]
  - Scoliosis [Unknown]
  - Increased bronchial secretion [Unknown]
  - Decubitus ulcer [Unknown]
  - Muscle tightness [Unknown]
  - Muscle spasms [Unknown]
  - Myalgia [Unknown]
  - Pain [Unknown]
  - Inappropriate schedule of product administration [Recovered/Resolved]
  - Emotional distress [Recovered/Resolved]
  - Fatigue [Unknown]
